FAERS Safety Report 25495513 (Version 4)
Quarter: 2025Q3

REPORT INFORMATION
  Report Type: Spontaneous
  Country: JP (occurrence: JP)
  Receive Date: 20250630
  Receipt Date: 20250827
  Transmission Date: 20251020
  Serious: Yes (Other)
  Sender: MERCK SHARP & DOHME LLC
  Company Number: JP-009507513-2288443

PATIENT
  Age: 70 Year
  Sex: Male

DRUGS (8)
  1. KEYTRUDA [Suspect]
     Active Substance: PEMBROLIZUMAB
     Indication: Bladder transitional cell carcinoma metastatic
     Dosage: 200MG ONCE EVERY 3 WEEKS.
     Route: 041
     Dates: start: 20230929, end: 20231110
  2. KEYTRUDA [Suspect]
     Active Substance: PEMBROLIZUMAB
     Indication: Bladder transitional cell carcinoma metastatic
     Dosage: 200MG ONCE EVERY 3 WEEKS.
     Route: 041
     Dates: start: 20250128, end: 20250128
  3. KEYTRUDA [Suspect]
     Active Substance: PEMBROLIZUMAB
     Indication: Bladder transitional cell carcinoma metastatic
     Dosage: 200MG ONCE EVERY 3 WEEKS.
     Route: 041
     Dates: start: 20250313, end: 20250423
  4. KEYTRUDA [Suspect]
     Active Substance: PEMBROLIZUMAB
     Indication: Bladder transitional cell carcinoma metastatic
     Dosage: 200MG ONCE EVERY 3 WEEKS.
     Route: 041
     Dates: end: 20240104
  5. M GEM [Concomitant]
     Indication: Bladder transitional cell carcinoma metastatic
     Dates: start: 20230818, end: 20230907
  6. M GEM [Concomitant]
     Indication: Bladder transitional cell carcinoma metastatic
     Dates: start: 20230704, end: 20230724
  7. CARBOPLATIN [Concomitant]
     Active Substance: CARBOPLATIN
     Indication: Bladder transitional cell carcinoma metastatic
     Dates: start: 20230818, end: 20230907
  8. CARBOPLATIN [Concomitant]
     Active Substance: CARBOPLATIN
     Indication: Bladder transitional cell carcinoma metastatic
     Dates: start: 20230704, end: 20230724

REACTIONS (5)
  - Autoimmune pancreatitis [Unknown]
  - Malignant neoplasm progression [Unknown]
  - Cholangitis [Recovering/Resolving]
  - Immune-mediated dermatitis [Unknown]
  - Immune-mediated mucositis [Not Recovered/Not Resolved]

NARRATIVE: CASE EVENT DATE: 20231124
